FAERS Safety Report 9802560 (Version 1)
Quarter: 2014Q1

REPORT INFORMATION
  Report Type: Spontaneous
  Country: ES (occurrence: ES)
  Receive Date: 20140108
  Receipt Date: 20140108
  Transmission Date: 20141002
  Serious: Yes (Hospitalization)
  Sender: FDA-Public Use
  Company Number: ES-AMGEN-ESPSP2014000096

PATIENT
  Age: 75 Year
  Sex: Female

DRUGS (12)
  1. PROLIA [Suspect]
     Indication: RHEUMATIC DISORDER
     Dosage: 60 MG, UNK
     Route: 065
     Dates: start: 20131202
  2. SEGURIL [Concomitant]
     Dosage: 40 MG QD
     Route: 048
  3. MYFORTIC [Concomitant]
     Dosage: 180 MG BID
     Route: 048
  4. CERTICAN [Concomitant]
     Dosage: 0.25 MG, BID
     Route: 048
  5. PREDNISONA [Concomitant]
     Dosage: 2.5 MG QD
     Route: 048
  6. ADIRO AP [Concomitant]
     Dosage: 100 MG QD
     Route: 048
  7. COROPRES                           /00984501/ [Concomitant]
     Route: 048
  8. PANTECTA CONTROL [Concomitant]
     Route: 048
  9. EMPORTAL [Concomitant]
     Dosage: 2 SOBRES/12H
     Route: 048
  10. EPREX PROTECS [Concomitant]
     Route: 058
  11. ZEMPLAR [Concomitant]
     Dosage: 1 MUG, QD
     Route: 048
     Dates: start: 20131202
  12. MASTICAL [Concomitant]
     Route: 048
     Dates: start: 20131202

REACTIONS (1)
  - Hypocalcaemia [Recovering/Resolving]
